FAERS Safety Report 12995701 (Version 1)
Quarter: 2016Q4

REPORT INFORMATION
  Report Type: Report from Study
  Country: KR (occurrence: KR)
  Receive Date: 20161202
  Receipt Date: 20161202
  Transmission Date: 20170207
  Serious: Yes (Hospitalization)
  Sender: FDA-Public Use
  Company Number: KR-PFIZER INC-2016546164

PATIENT
  Age: 48 Year
  Sex: Female
  Weight: 61.5 kg

DRUGS (6)
  1. PREDNISONE. [Suspect]
     Active Substance: PREDNISONE
     Indication: DIFFUSE LARGE B-CELL LYMPHOMA
     Dosage: 100 MG, 1-5 DAYS OUT OF 21 DAY CYCLE
     Route: 048
     Dates: start: 20161101, end: 20161105
  2. DOXORUBICIN [Suspect]
     Active Substance: DOXORUBICIN
     Indication: DIFFUSE LARGE B-CELL LYMPHOMA
     Dosage: 50 MG/M2, 1 IN 21 D
     Route: 042
     Dates: start: 20161101
  3. BLINDED THERAPY [Suspect]
     Active Substance: INVESTIGATIONAL PRODUCT
     Indication: DIFFUSE LARGE B-CELL LYMPHOMA
     Dosage: 15 MG, 14 IN 21 DAYS
     Route: 048
     Dates: start: 20161101, end: 20161107
  4. RITUXIMAB [Suspect]
     Active Substance: RITUXIMAB
     Indication: DIFFUSE LARGE B-CELL LYMPHOMA
     Dosage: 375 MG/M2, 1 IN 21
     Route: 042
     Dates: start: 20161101
  5. VINCRISTINE SULFATE. [Suspect]
     Active Substance: VINCRISTINE SULFATE
     Indication: DIFFUSE LARGE B-CELL LYMPHOMA
     Dosage: 1.4 MG/M2, UNK
     Route: 042
     Dates: start: 20161101
  6. CYCLOPHOSPHAMIDE. [Suspect]
     Active Substance: CYCLOPHOSPHAMIDE
     Indication: DIFFUSE LARGE B-CELL LYMPHOMA
     Dosage: 750 MG/M2, 1 IN 21 DAYS
     Route: 042
     Dates: start: 20161101

REACTIONS (2)
  - Tumour haemorrhage [Recovered/Resolved]
  - Gastric haemorrhage [Recovered/Resolved]

NARRATIVE: CASE EVENT DATE: 20161106
